FAERS Safety Report 4957011-7 (Version None)
Quarter: 2006Q1

REPORT INFORMATION
  Report Type: 
  Country: None (occurrence: None)
  Receive Date: 20060127
  Receipt Date: 20050817
  Transmission Date: 20060701
  Serious: Yes (Hospitalization, Other)
  Sender: FDA-Public Use
  Company Number: 05-08-1457

PATIENT
  Age: 66 Year
  Sex: Female

DRUGS (2)
  1. CLOZAPINE [Suspect]
     Indication: BIPOLAR I DISORDER
     Dosage: 200MG QD, ORAL
     Route: 048
     Dates: start: 20030301
  2. CLOZAPINE [Suspect]
     Indication: MANIA
     Dosage: 200MG QD, ORAL
     Route: 048
     Dates: start: 20030301

REACTIONS (1)
  - PNEUMONIA [None]
